FAERS Safety Report 14185928 (Version 1)
Quarter: 2017Q4

REPORT INFORMATION
  Report Type: Spontaneous
  Country: US (occurrence: None)
  Receive Date: 20171112
  Receipt Date: 20171112
  Transmission Date: 20180321
  Serious: No
  Sender: FDA-Public Use
  Company Number: None

PATIENT
  Sex: Female

DRUGS (1)
  1. DUPIXENT [Suspect]
     Active Substance: DUPILUMAB
     Indication: ANGINA PECTORIS
     Route: 058
     Dates: start: 20170831

REACTIONS (4)
  - Pyrexia [None]
  - Pain [None]
  - Diarrhoea [None]
  - Abdominal pain upper [None]
